FAERS Safety Report 10776754 (Version 1)
Quarter: 2015Q1

REPORT INFORMATION
  Report Type: Spontaneous
  Country: PL (occurrence: PL)
  Receive Date: 20150209
  Receipt Date: 20150209
  Transmission Date: 20150721
  Serious: Yes (Death, Hospitalization)
  Sender: FDA-Public Use
  Company Number: PL-SA-2015SA011086

PATIENT
  Age: 59 Year
  Sex: Male

DRUGS (5)
  1. SULPHASALAZINE [Concomitant]
     Active Substance: SULFASALAZINE
     Indication: RHEUMATOID ARTHRITIS
  2. LEFLUNOMIDE. [Suspect]
     Active Substance: LEFLUNOMIDE
     Indication: RHEUMATOID ARTHRITIS
     Route: 065
     Dates: start: 200911
  3. CYCLOPHOSPHAMIDE. [Suspect]
     Active Substance: CYCLOPHOSPHAMIDE
     Indication: INTERSTITIAL LUNG DISEASE
     Route: 065
     Dates: start: 2010
  4. PREDNISONE. [Concomitant]
     Active Substance: PREDNISONE
     Indication: RHEUMATOID ARTHRITIS
  5. LEFLUNOMIDE. [Suspect]
     Active Substance: LEFLUNOMIDE
     Indication: RHEUMATOID ARTHRITIS
     Route: 065
     Dates: start: 2009

REACTIONS (18)
  - C-reactive protein increased [Fatal]
  - Fibrin D dimer increased [Fatal]
  - Pulmonary hypertension [Unknown]
  - Cough [Fatal]
  - Respiratory failure [Fatal]
  - Echocardiogram abnormal [Unknown]
  - Vital capacity decreased [Fatal]
  - PO2 decreased [Fatal]
  - Product use issue [Unknown]
  - Pyrexia [Fatal]
  - Leukopenia [Unknown]
  - Rales [Fatal]
  - Hypoxia [Fatal]
  - Neutropenia [Unknown]
  - Interstitial lung disease [Fatal]
  - Dyspnoea exertional [Fatal]
  - Tachypnoea [Fatal]
  - Pulmonary arterial pressure increased [Unknown]

NARRATIVE: CASE EVENT DATE: 2010
